FAERS Safety Report 15329748 (Version 1)
Quarter: 2018Q3

REPORT INFORMATION
  Report Type: Spontaneous
  Country: JP (occurrence: JP)
  Receive Date: 20180829
  Receipt Date: 20180829
  Transmission Date: 20181010
  Serious: No
  Sender: FDA-Public Use
  Company Number: JP-PFIZER INC-2018344978

PATIENT

DRUGS (1)
  1. FOSPHENYTOIN SODIUM. [Suspect]
     Active Substance: FOSPHENYTOIN SODIUM
     Dosage: UNK
     Route: 041

REACTIONS (2)
  - Injection site extravasation [Unknown]
  - Injection site swelling [Unknown]
